FAERS Safety Report 9006921 (Version 1)
Quarter: 2013Q1

REPORT INFORMATION
  Report Type: Spontaneous
  Country: BR (occurrence: BR)
  Receive Date: 20130110
  Receipt Date: 20130110
  Transmission Date: 20140127
  Serious: Yes (Other)
  Sender: FDA-Public Use
  Company Number: BR-AMGEN-BRASP2012032335

PATIENT
  Age: 55 Year
  Sex: Female
  Weight: 47 kg

DRUGS (10)
  1. ENBREL [Suspect]
     Indication: RHEUMATOID ARTHRITIS
     Dosage: 50 MG, ONCE WEEKLY
     Route: 058
     Dates: start: 201203
  2. ENBREL [Suspect]
     Dosage: UNK
     Dates: start: 201203, end: 201212
  3. LEFLUNOMIDE [Concomitant]
     Indication: RHEUMATOID ARTHRITIS
     Dosage: 20 MG, UNK
  4. PREDNISONE [Concomitant]
     Indication: PAIN
     Dosage: 10 MG, UNK
  5. PREDNISONE [Concomitant]
     Indication: RHEUMATOID ARTHRITIS
     Dosage: UNK
  6. OMEPRAZOLE [Concomitant]
     Indication: GASTRIC DISORDER
     Dosage: 20 MG, UNK
  7. LOPERAMIDE HYDROCHLORIDE [Concomitant]
     Indication: BONE DISORDER
     Dosage: 2 MG, UNK
  8. ALENDRONATE SODIUM [Concomitant]
     Indication: BONE DISORDER
     Dosage: 70 MG, UNK
  9. CALCIUM, VITAMIN D [Concomitant]
     Indication: BONE DISORDER
     Dosage: 600MG/400MG
  10. VITAMIN B [Concomitant]
     Dosage: UNK

REACTIONS (8)
  - Rheumatoid arthritis [Not Recovered/Not Resolved]
  - Rheumatic fever [Unknown]
  - Pruritus [Unknown]
  - Rash macular [Unknown]
  - Nervousness [Not Recovered/Not Resolved]
  - Blood pressure increased [Not Recovered/Not Resolved]
  - Therapeutic response decreased [Unknown]
  - Infection [Not Recovered/Not Resolved]
